FAERS Safety Report 20181548 (Version 1)
Quarter: 2021Q4

REPORT INFORMATION
  Report Type: Spontaneous
  Country: US (occurrence: None)
  Receive Date: 20211213
  Receipt Date: 20211213
  Transmission Date: 20220303
  Serious: Yes (Other)
  Sender: FDA-Public Use
  Company Number: None

PATIENT
  Age: 47 Year
  Sex: Female
  Weight: 82.8 kg

DRUGS (7)
  1. AJOVY [Suspect]
     Active Substance: FREMANEZUMAB-VFRM
     Indication: Migraine prophylaxis
     Dosage: OTHER FREQUENCY : ONCE MONTHLY;?
     Route: 058
     Dates: start: 20190621
  2. CLARITIN [Concomitant]
     Active Substance: LORATADINE
  3. XANAX [Concomitant]
     Active Substance: ALPRAZOLAM
  4. VALTREX [Concomitant]
     Active Substance: VALACYCLOVIR HYDROCHLORIDE
  5. MAXALT [Concomitant]
     Active Substance: RIZATRIPTAN BENZOATE
  6. FLONASE [Concomitant]
     Active Substance: FLUTICASONE PROPIONATE
  7. PROVENTIL HFA [Concomitant]
     Active Substance: ALBUTEROL SULFATE

REACTIONS (2)
  - Smear cervix abnormal [None]
  - Back pain [None]

NARRATIVE: CASE EVENT DATE: 20211029
